FAERS Safety Report 7112141-9 (Version None)
Quarter: 2010Q4

REPORT INFORMATION
  Report Type: 
  Country: None (occurrence: None)
  Receive Date: 20101119
  Receipt Date: 20091226
  Transmission Date: 20110411
  Serious: No
  Sender: FDA-Public Use
  Company Number: A0836856A

PATIENT
  Sex: Male

DRUGS (1)
  1. AVODART [Suspect]
     Route: 065

REACTIONS (1)
  - BLOOD GLUCOSE INCREASED [None]
